FAERS Safety Report 14857382 (Version 1)
Quarter: 2018Q2

REPORT INFORMATION
  Report Type: Spontaneous
  Country: US (occurrence: US)
  Receive Date: 20180508
  Receipt Date: 20180508
  Transmission Date: 20180711
  Serious: No
  Sender: FDA-Public Use
  Company Number: US-RADIUS HEALTH INC.-2018US000385

PATIENT
  Age: 62 Year
  Sex: Female

DRUGS (1)
  1. TYMLOS [Suspect]
     Active Substance: ABALOPARATIDE
     Indication: OSTEOPOROSIS POSTMENOPAUSAL
     Dosage: 80 MCG, DAILY
     Route: 058
     Dates: start: 20180116, end: 20180309

REACTIONS (6)
  - Oral mucosal blistering [Unknown]
  - Dry mouth [Unknown]
  - Dizziness [Unknown]
  - Stomatitis [Unknown]
  - Oral pain [Unknown]
  - Myalgia [Unknown]

NARRATIVE: CASE EVENT DATE: 20180309
